FAERS Safety Report 14781669 (Version 1)
Quarter: 2018Q2

REPORT INFORMATION
  Report Type: Report from Study
  Country: US (occurrence: US)
  Receive Date: 20180420
  Receipt Date: 20180420
  Transmission Date: 20180711
  Serious: Yes (Other)
  Sender: FDA-Public Use
  Company Number: US-AMGEN-USASP2018042144

PATIENT
  Age: 53 Year
  Sex: Female

DRUGS (2)
  1. REPATHA [Suspect]
     Active Substance: EVOLOCUMAB
     Indication: BLOOD CHOLESTEROL INCREASED
     Dosage: 140 MG, Q2WK
     Route: 065
     Dates: start: 20171101
  2. REPATHA [Suspect]
     Active Substance: EVOLOCUMAB
     Dosage: UNK
     Route: 065

REACTIONS (13)
  - Blood glucose increased [Unknown]
  - Injection site pain [Unknown]
  - Arthropathy [Unknown]
  - Wrong technique in product usage process [Unknown]
  - Aphasia [Unknown]
  - Influenza like illness [Unknown]
  - Musculoskeletal disorder [Unknown]
  - Drug dose omission [Unknown]
  - Paraesthesia [Unknown]
  - Fatigue [Unknown]
  - Injection site erythema [Unknown]
  - Back pain [Unknown]
  - Injury associated with device [Unknown]

NARRATIVE: CASE EVENT DATE: 20180316
